FAERS Safety Report 11712908 (Version 1)
Quarter: 2015Q4

REPORT INFORMATION
  Report Type: Spontaneous
  Country: GB (occurrence: GB)
  Receive Date: 20151108
  Receipt Date: 20151108
  Transmission Date: 20160304
  Serious: Yes (Hospitalization)
  Sender: FDA-Public Use
  Company Number: GB-TEVA-605502ACC

PATIENT
  Age: 61 Year
  Sex: Male

DRUGS (9)
  1. ATENOLOL. [Concomitant]
     Active Substance: ATENOLOL
  2. ISOSORBIDE DINITRATE. [Concomitant]
     Active Substance: ISOSORBIDE DINITRATE
  3. ATORVASTATIN [Concomitant]
     Active Substance: ATORVASTATIN
  4. SALBUTAMOL [Concomitant]
     Active Substance: ALBUTEROL
     Route: 055
  5. TIOTROPIUM [Concomitant]
     Active Substance: TIOTROPIUM
     Route: 055
  6. PANTOPRAZOLE [Suspect]
     Active Substance: PANTOPRAZOLE SODIUM
     Indication: PROPHYLAXIS AGAINST GASTROINTESTINAL ULCER
     Dosage: 20 MILLIGRAM DAILY;
     Route: 048
     Dates: start: 20130520, end: 20151015
  7. GABAPENTIN. [Concomitant]
     Active Substance: GABAPENTIN
  8. FELODIPIN [Concomitant]
     Active Substance: FELODIPINE
  9. BETAMETHASONE AND FUSIDIC ACID [Concomitant]

REACTIONS (7)
  - Laryngospasm [Unknown]
  - Hypocalcaemia [Recovered/Resolved]
  - Hypoaesthesia [Unknown]
  - Throat tightness [Unknown]
  - Hypomagnesaemia [Recovered/Resolved]
  - Paraesthesia [Unknown]
  - Dyspnoea [Unknown]

NARRATIVE: CASE EVENT DATE: 20130520
